FAERS Safety Report 18952929 (Version 7)
Quarter: 2021Q3

REPORT INFORMATION
  Report Type: Spontaneous
  Country: DK (occurrence: DK)
  Receive Date: 20210301
  Receipt Date: 20210715
  Transmission Date: 20211014
  Serious: Yes (Hospitalization, Other)
  Sender: FDA-Public Use
  Company Number: DK-NOVOPROD-789721

PATIENT
  Age: 64 Year
  Sex: Female
  Weight: 90 kg

DRUGS (9)
  1. VAGIFEM [Concomitant]
     Active Substance: ESTRADIOL
     Indication: PRODUCT USED FOR UNKNOWN INDICATION
     Dosage: 10 ?G, QD
     Route: 065
  2. ELTROXIN [Concomitant]
     Active Substance: LEVOTHYROXINE
     Indication: PRODUCT USED FOR UNKNOWN INDICATION
     Route: 065
  3. CITALOPRAM [Concomitant]
     Active Substance: CITALOPRAM HYDROBROMIDE
     Indication: PRODUCT USED FOR UNKNOWN INDICATION
     Dosage: 30 MG, QD
     Route: 065
  4. NOVORAPID [Suspect]
     Active Substance: INSULIN ASPART
     Dosage: INCREASED 20%
     Route: 058
  5. NOVORAPID [Suspect]
     Active Substance: INSULIN ASPART
     Dosage: INCREASED 50%
     Route: 058
  6. LANSOPRAZOL [Concomitant]
     Active Substance: LANSOPRAZOLE
     Indication: PRODUCT USED FOR UNKNOWN INDICATION
     Dosage: 30 MG, QD
     Route: 065
  7. ACLASTA [Concomitant]
     Active Substance: ZOLEDRONIC ACID
     Indication: PRODUCT USED FOR UNKNOWN INDICATION
     Dosage: 5 MG 1 TIME A YEAR
     Route: 042
  8. NOVORAPID [Suspect]
     Active Substance: INSULIN ASPART
     Indication: TYPE 1 DIABETES MELLITUS
     Dosage: APPROXIMATELY 30 IU A DAY ADMINISTERED WITH TANDEM PUMP
     Route: 058
     Dates: start: 199005
  9. NOVORAPID [Suspect]
     Active Substance: INSULIN ASPART
     Dosage: 7 UNITS
     Route: 058
     Dates: start: 20210206

REACTIONS (7)
  - Visual impairment [Recovered/Resolved]
  - Blood glucose increased [Recovered/Resolved]
  - Diabetic ketoacidosis [Recovered/Resolved]
  - Drug ineffective [Unknown]
  - Glycosylated haemoglobin increased [Unknown]
  - Vitreous detachment [Recovered/Resolved]
  - Cataract [Unknown]

NARRATIVE: CASE EVENT DATE: 202101
